FAERS Safety Report 9522933 (Version 1)
Quarter: 2013Q1

REPORT INFORMATION
  Report Type: Spontaneous
  Country: US (occurrence: None)
  Receive Date: 20130305
  Receipt Date: 20130305
  Transmission Date: 20140127
  Serious: Yes (Other)
  Sender: FDA-Public Use
  Company Number: 163-21880-12063962

PATIENT
  Age: 74 Year
  Sex: Female
  Weight: 60.5 kg

DRUGS (16)
  1. REVLIMID [Suspect]
     Indication: WALDENSTROM^S MACROGLOBULINAEMIA
     Dosage: 10 MG, QD X 21 D, PO
     Route: 048
     Dates: start: 20120406, end: 20120606
  2. HYDROCODONE-ACETAMINOPHEN (REMEDEINE) [Concomitant]
  3. CODEINE-GUAIFENESIN (CHERACOL /USA/) [Concomitant]
  4. ONDANSETRON (ONDANSETRON) [Concomitant]
  5. ALLOPURINOL [Concomitant]
  6. CETIRIZINE-PSUDOEPHRINE (CETIRIZINE W/PSEUDOEPHEDRINE) [Concomitant]
  7. FLUTICASONE (FLUTICASONE) [Concomitant]
  8. HYDROQUINONE (HYDROQUINONE) [Concomitant]
  9. BECLOMETHASONE DIPROPIONATE (BECLOMETASONE DIPROPIONATE) [Concomitant]
  10. IBUPROFEN (IBUPROFEN) [Concomitant]
  11. TRAZODONE (TRAZODONE) [Concomitant]
  12. FUROSEMIDE (FUROSEMIDE) [Concomitant]
  13. ALBUTEROL (SALBUTAMOL) [Concomitant]
  14. BENZONATATE (BENZONATATE) [Concomitant]
  15. CALCIUM CARBONATE (CALCIUM CARBONATE) [Concomitant]
  16. METHYLPREDNISOLONE (METHYLPREDNISOLONE) [Concomitant]

REACTIONS (1)
  - Pleural effusion [None]
